FAERS Safety Report 8925551 (Version 1)
Quarter: 2012Q4

REPORT INFORMATION
  Report Type: 
  Country: US (occurrence: US)
  Receive Date: 20121126
  Receipt Date: 20121126
  Transmission Date: 20130627
  Serious: Yes (Hospitalization)
  Sender: FDA-Public Use
  Company Number: US-BAYER-2012-120490

PATIENT
  Age: 22 Year
  Sex: Female
  Weight: 66 kg

DRUGS (7)
  1. OCELLA [Suspect]
     Indication: CONTRACEPTION
     Dosage: 0.03 mg-3 mg Tablet 1 tablet oral daily
     Route: 048
  2. YAZ [Suspect]
  3. SYNTHROID [Concomitant]
     Indication: HYPOTHYROIDISM
     Dosage: 50 ?g, Daily
  4. ZANTAC [Concomitant]
     Indication: DYSPEPSIA
  5. MULTIVITAMIN [Concomitant]
  6. ALLERGY MEDICATION [Concomitant]
  7. LEVOTHYROXINE [Concomitant]
     Indication: HYPOTHYROIDISM
     Dosage: Daily dose 50 ?g
     Dates: start: 20110802

REACTIONS (1)
  - Deep vein thrombosis [Recovered/Resolved]
